FAERS Safety Report 8976921 (Version 2)
Quarter: 2013Q1

REPORT INFORMATION
  Report Type: Report from Study
  Country: US (occurrence: US)
  Receive Date: 20121220
  Receipt Date: 20130103
  Transmission Date: 20140127
  Serious: Yes (Other)
  Sender: FDA-Public Use
  Company Number: US-US-EMD SERONO, INC.-7182368

PATIENT
  Sex: Female

DRUGS (3)
  1. REBIF [Suspect]
     Indication: MULTIPLE SCLEROSIS
     Route: 058
     Dates: start: 20030116
  2. UNSPECIFIED MEDICATION [Concomitant]
     Indication: HYPERTENSION
  3. UNSPECIFIED SUPPOSITORIES [Concomitant]
     Indication: PRODUCT USED FOR UNKNOWN INDICATION

REACTIONS (4)
  - Calculus bladder [Unknown]
  - Urinary tract infection [Recovering/Resolving]
  - Drug resistance [Unknown]
  - Cystitis [Not Recovered/Not Resolved]
